FAERS Safety Report 9644287 (Version 2)
Quarter: 2013Q4

REPORT INFORMATION
  Report Type: Report from Study
  Country: FR (occurrence: FR)
  Receive Date: 20131025
  Receipt Date: 20131030
  Transmission Date: 20140711
  Serious: Yes (Other)
  Sender: FDA-Public Use
  Company Number: FR-ROCHE-1293134

PATIENT
  Age: 48 Year
  Sex: Male

DRUGS (8)
  1. PEG-INTERFERON ALFA 2A [Suspect]
     Indication: HEPATITIS C
     Route: 065
     Dates: start: 20130417
  2. RIBAVIRIN [Suspect]
     Indication: HEPATITIS C
     Route: 065
     Dates: start: 20130417
  3. ASUNAPREVIR [Suspect]
     Indication: HEPATITIS C
     Route: 065
     Dates: start: 20130516
  4. DACLATASVIR [Suspect]
     Indication: HEPATITIS C
     Route: 065
     Dates: start: 20130516
  5. APROVEL [Concomitant]
     Route: 065
     Dates: start: 201109
  6. XYZALL [Concomitant]
     Route: 065
     Dates: start: 20130708
  7. TRUVADA [Concomitant]
     Route: 065
     Dates: start: 20121127
  8. ISENTRESS [Concomitant]
     Route: 065
     Dates: start: 20121127

REACTIONS (2)
  - Leukopenia [Unknown]
  - Neutropenia [Unknown]
